FAERS Safety Report 9077609 (Version 1)
Quarter: 2013Q1

REPORT INFORMATION
  Report Type: Spontaneous
  Country: IN (occurrence: IN)
  Receive Date: 20130130
  Receipt Date: 20130130
  Transmission Date: 20140127
  Serious: Yes (Hospitalization, Other)
  Sender: FDA-Public Use
  Company Number: PHHY2013IN008115

PATIENT
  Age: 59 Year
  Sex: Female

DRUGS (1)
  1. ACLASTA [Suspect]
     Indication: OSTEOPOROSIS
     Dosage: 5 MG/100ML PER YEAR
     Route: 042
     Dates: start: 20130110

REACTIONS (4)
  - Fatigue [Recovering/Resolving]
  - Malaise [Recovering/Resolving]
  - Weight increased [Unknown]
  - Increased appetite [Unknown]
